FAERS Safety Report 10176588 (Version 1)
Quarter: 2014Q2

REPORT INFORMATION
  Report Type: Spontaneous
  Country: IT (occurrence: None)
  Receive Date: 20140514
  Receipt Date: 20140514
  Transmission Date: 20141212
  Serious: Yes (Other)
  Sender: FDA-Public Use
  Company Number: 2330119

PATIENT
  Age: 48 Year
  Sex: Male
  Weight: 104 kg

DRUGS (11)
  1. GEMCITABINE HYDROCHLORIDE [Suspect]
     Indication: PANCREATIC CARCINOMA
     Dosage: 170 MG MILLIGRAM(S), CYCLICAL, INTRAVENOUS
     Route: 042
     Dates: start: 20130822, end: 20140203
  2. DECADRON [Suspect]
     Indication: PREMEDICATION
     Dosage: 4 MG MILLIGRAM(S), CYCLICAL, INTRAVENOUS
     Route: 042
     Dates: start: 20130822, end: 20140203
  3. ZANTAC [Suspect]
     Indication: PREMEDICATION
     Dosage: 50 MG MILLIGRAM(S), CYCLICAL, INTRAVENOUS
     Route: 042
     Dates: start: 20130822, end: 20140203
  4. CREON [Concomitant]
  5. PANTORC [Concomitant]
  6. NOVORAPID [Concomitant]
  7. LEVEMIR [Concomitant]
  8. PLAVIX [Concomitant]
  9. ZOPRANOL [Concomitant]
  10. CRESTOR [Concomitant]
  11. EFIENT [Concomitant]

REACTIONS (4)
  - Loss of consciousness [None]
  - Generalised tonic-clonic seizure [None]
  - Dizziness [None]
  - Nausea [None]
